FAERS Safety Report 6257349-X (Version None)
Quarter: 2009Q3

REPORT INFORMATION
  Report Type: 
  Country: None (occurrence: None)
  Receive Date: 20090706
  Receipt Date: 20090625
  Transmission Date: 20100115
  Serious: Yes (Hospitalization)
  Sender: FDA-Public Use
  Company Number: PHHO2008JP04346

PATIENT
  Sex: Male
  Weight: 63 kg

DRUGS (13)
  1. NEORAL [Suspect]
     Indication: RENAL TRANSPLANT
     Dosage: 660 MG PER DAY
     Route: 048
     Dates: start: 20080219
  2. NEORAL [Suspect]
     Dosage: 440 MG / DAY
     Route: 048
     Dates: start: 20080410
  3. SANDIMMUNE [Suspect]
     Indication: RENAL TRANSPLANT
  4. SIMULECT [Suspect]
     Indication: RENAL TRANSPLANT
     Dosage: 20 MG, QD
     Route: 042
     Dates: start: 20080313
  5. MYCOPHENOLATE MOFETIL [Suspect]
     Indication: RENAL TRANSPLANT
     Dosage: 2000 MG / PER DAY
     Route: 048
     Dates: start: 20080222, end: 20080401
  6. MYCOPHENOLATE MOFETIL [Suspect]
     Dosage: 1500 MG PER DAY
     Route: 048
     Dates: start: 20080402, end: 20080424
  7. MYCOPHENOLATE MOFETIL [Suspect]
     Dosage: 1000 MG / DAY
     Route: 048
     Dates: start: 20080425, end: 20080425
  8. MYCOPHENOLATE MOFETIL [Suspect]
     Dosage: 500 MG / DAY
     Route: 048
     Dates: start: 20080426
  9. PREDNISOLONE [Suspect]
     Dosage: 20 MG / DAY
     Route: 048
     Dates: start: 20080227
  10. PREDNISOLONE [Suspect]
     Dosage: 5 MG / DAY
     Route: 048
     Dates: start: 20080313
  11. BLOPRESS [Suspect]
     Indication: HYPERTENSION
     Dosage: UNK
     Dates: start: 20080818
  12. BAKTAR [Concomitant]
  13. GASTER [Concomitant]

REACTIONS (13)
  - ACNE [None]
  - ARTHRALGIA [None]
  - BACK PAIN [None]
  - BLOOD CREATININE INCREASED [None]
  - BODY TEMPERATURE INCREASED [None]
  - CYTOMEGALOVIRUS ANTIGEN POSITIVE [None]
  - CYTOMEGALOVIRUS INFECTION [None]
  - HEADACHE [None]
  - HYPOALBUMINAEMIA [None]
  - INFLUENZA [None]
  - INSOMNIA [None]
  - PARAESTHESIA [None]
  - VOCAL CORD PARALYSIS [None]
